FAERS Safety Report 4889390-3 (Version None)
Quarter: 2006Q1

REPORT INFORMATION
  Report Type: 
  Country: None (occurrence: None)
  Receive Date: 20060120
  Receipt Date: 20060120
  Transmission Date: 20060701
  Serious: Yes (Other)
  Sender: FDA-Public Use
  Company Number: None

PATIENT
  Age: 55 Year
  Sex: Female
  Weight: 62.5964 kg

DRUGS (1)
  1. LEVAQUIN [Suspect]
     Dosage: 1 TABLE DAILY  FOR 8 DAYS
     Dates: start: 20060110

REACTIONS (2)
  - EYE SWELLING [None]
  - URTICARIA GENERALISED [None]
